FAERS Safety Report 5878850-4 (Version None)
Quarter: 2008Q3

REPORT INFORMATION
  Report Type: 
  Country: None (occurrence: None)
  Receive Date: 20080910
  Receipt Date: 20080829
  Transmission Date: 20090109
  Serious: No
  Sender: FDA-Public Use
  Company Number: 2008S1014582

PATIENT
  Age: 47 Year
  Sex: Female

DRUGS (3)
  1. AMNESTEEM [Suspect]
     Indication: ACNE CYSTIC
     Dosage: 40 MG, DAILY; ORAL
     Route: 048
     Dates: start: 20080604, end: 20080701
  2. NASACORT [Concomitant]
  3. ORTHO TRI-CYCLEN [Concomitant]

REACTIONS (3)
  - ANXIETY [None]
  - PANIC ATTACK [None]
  - TREATMENT NONCOMPLIANCE [None]
